FAERS Safety Report 4943330-7 (Version None)
Quarter: 2006Q1

REPORT INFORMATION
  Report Type: 
  Country: None (occurrence: None)
  Receive Date: 20060314
  Receipt Date: 20060202
  Transmission Date: 20060701
  Serious: Yes (Other)
  Sender: FDA-Public Use
  Company Number: GR-SANOFI-SYNTHELABO-A01200601169

PATIENT
  Age: 67 Year
  Sex: Female

DRUGS (6)
  1. ZOLPIDEM [Suspect]
     Indication: INSOMNIA
     Dosage: UNK
     Route: 065
  2. AMIODARONE [Interacting]
     Indication: DRUG USE FOR UNKNOWN INDICATION
     Dosage: 450 MG
     Route: 042
  3. AMIODARONE [Interacting]
     Dosage: 900 MG
     Route: 042
  4. CAPTOPRIL [Concomitant]
     Dosage: UNK
     Route: 065
  5. FUROSEMIDE [Concomitant]
     Dosage: UNK
     Route: 065
  6. WARFARIN [Concomitant]
     Dosage: UNK
     Route: 065

REACTIONS (5)
  - DRUG INTERACTION [None]
  - ELECTROCARDIOGRAM QT PROLONGED [None]
  - PALPITATIONS [None]
  - TORSADE DE POINTES [None]
  - VENTRICULAR FIBRILLATION [None]
